FAERS Safety Report 20706592 (Version 1)
Quarter: 2022Q2

REPORT INFORMATION
  Report Type: Spontaneous
  Country: US (occurrence: None)
  Receive Date: 20220409
  Receipt Date: 20220409
  Transmission Date: 20220721
  Serious: Yes (Disabling)
  Sender: FDA-Public Use
  Company Number: None

PATIENT
  Age: 33 Year
  Sex: Female
  Weight: 54 kg

DRUGS (5)
  1. VITAMIN C [Suspect]
     Active Substance: ASCORBIC ACID
     Indication: Immune system disorder
  2. VITAMIN D NOS [Concomitant]
     Active Substance: VITAMIN D NOS
  3. PROBIOTICS NOS [Concomitant]
     Active Substance: PROBIOTICS NOS
  4. VITAMINS [Concomitant]
     Active Substance: VITAMINS
  5. CLARITIN [Concomitant]
     Active Substance: LORATADINE

REACTIONS (8)
  - Illness [None]
  - Hypotension [None]
  - Heart rate increased [None]
  - Dizziness [None]
  - Malaise [None]
  - Product formulation issue [None]
  - Dizziness [None]
  - Hypersensitivity [None]

NARRATIVE: CASE EVENT DATE: 20200721
